FAERS Safety Report 5315530-8 (Version None)
Quarter: 2007Q2

REPORT INFORMATION
  Report Type: 
  Country: None (occurrence: None)
  Receive Date: 20070501
  Receipt Date: 20070501
  Transmission Date: 20071010
  Serious: Yes (Hospitalization)
  Sender: FDA-Public Use
  Company Number: None

PATIENT
  Age: 39 Year
  Sex: Female
  Weight: 68.0396 kg

DRUGS (1)
  1. SEROQUEL [Suspect]
     Indication: DEPRESSION
     Dates: start: 20061109, end: 20070212

REACTIONS (12)
  - ANXIETY [None]
  - CONTRAINDICATION TO MEDICAL TREATMENT [None]
  - DEPRESSION [None]
  - DISTURBANCE IN ATTENTION [None]
  - DRUG PRESCRIBING ERROR [None]
  - DYSARTHRIA [None]
  - DYSPHAGIA [None]
  - EXTRAPYRAMIDAL DISORDER [None]
  - INSOMNIA [None]
  - MUSCLE TWITCHING [None]
  - THINKING ABNORMAL [None]
  - TRISMUS [None]
